FAERS Safety Report 16776178 (Version 1)
Quarter: 2019Q3

REPORT INFORMATION
  Report Type: Spontaneous
  Country: US (occurrence: US)
  Receive Date: 20190905
  Receipt Date: 20190905
  Transmission Date: 20191005
  Serious: Yes (Hospitalization, Other)
  Sender: FDA-Public Use
  Company Number: US-COVIS PHARMA B.V.-2019COV00211

PATIENT
  Sex: Male

DRUGS (7)
  1. UNSPECIFIED SUPPLEMENTS [Concomitant]
  2. UNSPECIFIED HOLISITC MEDICATIONS [Concomitant]
  3. SYMBICORT [Suspect]
     Active Substance: BUDESONIDE\FORMOTEROL FUMARATE DIHYDRATE
     Indication: CHRONIC OBSTRUCTIVE PULMONARY DISEASE
     Dosage: 2 PUFFS, 2X/DAY
     Route: 055
  4. SYMBICORT [Suspect]
     Active Substance: BUDESONIDE\FORMOTEROL FUMARATE DIHYDRATE
     Dosage: 1 PUFF, 2X/DAY
     Route: 055
  5. BEVESPI AEROSPHERE [Suspect]
     Active Substance: FORMOTEROL FUMARATE\GLYCOPYRROLATE
     Indication: CHRONIC OBSTRUCTIVE PULMONARY DISEASE
     Dosage: 2 PUFFS, 2X/DAY
     Route: 055
  6. BEVESPI AEROSPHERE [Suspect]
     Active Substance: FORMOTEROL FUMARATE\GLYCOPYRROLATE
     Dosage: 1 PUFF, 2X/DAY
     Route: 055
  7. OMEPRAZOLE MAGNESIUM. [Suspect]
     Active Substance: OMEPRAZOLE MAGNESIUM
     Indication: GASTROOESOPHAGEAL REFLUX DISEASE
     Route: 048

REACTIONS (17)
  - Prostatic specific antigen increased [Unknown]
  - Feeding disorder [Unknown]
  - Prostatic disorder [Unknown]
  - Bronchitis [Unknown]
  - Barrett^s oesophagus [Unknown]
  - Drug ineffective [Recovered/Resolved]
  - Pneumonia [Unknown]
  - Appendicectomy [Unknown]
  - Gastrointestinal disorder [Unknown]
  - Diverticulum [Unknown]
  - Bone disorder [Unknown]
  - Nasopharyngitis [Unknown]
  - Malaise [Unknown]
  - Candida infection [Unknown]
  - Abdominal discomfort [Unknown]
  - Weight decreased [Recovering/Resolving]
  - Insomnia [Unknown]

NARRATIVE: CASE EVENT DATE: 2017
